FAERS Safety Report 4956069-9 (Version None)
Quarter: 2006Q1

REPORT INFORMATION
  Report Type: 
  Country: None (occurrence: None)
  Receive Date: 20060328
  Receipt Date: 20051207
  Transmission Date: 20060701
  Serious: Yes (Hospitalization, Disabling, Other)
  Sender: FDA-Public Use
  Company Number: US-MERCK-0512USA01385

PATIENT
  Age: 42 Year
  Sex: Female
  Weight: 55 kg

DRUGS (1)
  1. VIOXX [Suspect]
     Indication: FIBROMYALGIA
     Route: 048
     Dates: start: 20010101, end: 20040301

REACTIONS (29)
  - ABDOMINAL PAIN [None]
  - ABDOMINAL PAIN LOWER [None]
  - ADVERSE DRUG REACTION [None]
  - ANXIETY [None]
  - ARTHRALGIA [None]
  - ASTHENIA [None]
  - BACK PAIN [None]
  - CHEST PAIN [None]
  - CORONARY ARTERY DISEASE [None]
  - COUGH [None]
  - CYSTITIS [None]
  - DIZZINESS [None]
  - DYSPNOEA [None]
  - FATIGUE [None]
  - HERPES ZOSTER [None]
  - HYPOAESTHESIA [None]
  - MYOCARDIAL INFARCTION [None]
  - MYOFASCIAL PAIN SYNDROME [None]
  - NECK PAIN [None]
  - NERVOUSNESS [None]
  - NON-CARDIAC CHEST PAIN [None]
  - OEDEMA [None]
  - OVARIAN CYST [None]
  - PAIN IN EXTREMITY [None]
  - POLLAKIURIA [None]
  - SHOULDER PAIN [None]
  - TUBERCULIN TEST POSITIVE [None]
  - VOMITING [None]
  - WEIGHT DECREASED [None]
